FAERS Safety Report 4527329-0 (Version None)
Quarter: 2004Q4

REPORT INFORMATION
  Report Type: 
  Country: None (occurrence: None)
  Receive Date: 20041214
  Receipt Date: 20041214
  Transmission Date: 20050328
  Serious: No
  Sender: FDA-Public Use
  Company Number: None

PATIENT
  Sex: Male
  Weight: 105.6881 kg

DRUGS (18)
  1. WARFARIN SODIUM [Suspect]
     Indication: DEEP VENOUS THROMBOSIS PROPHYLAXIS
     Dosage: 6MG  DAILY ORAL
     Route: 048
     Dates: start: 20041125, end: 20041210
  2. WARFARIN SODIUM [Suspect]
     Indication: KNEE ARTHROPLASTY
     Dosage: 6MG  DAILY ORAL
     Route: 048
     Dates: start: 20041125, end: 20041210
  3. KETOROLAC [Suspect]
     Indication: POST PROCEDURAL PAIN
     Dosage: ORAL
     Route: 048
     Dates: start: 20041203, end: 20041210
  4. CELEBREX [Concomitant]
  5. HYDROCHLOROTHIAZIDE [Concomitant]
  6. LOTENSIN [Concomitant]
  7. MYCELEX [Concomitant]
  8. NORVASC [Concomitant]
  9. PAXIL [Concomitant]
  10. DOCUSATE [Concomitant]
  11. PREVACID [Concomitant]
  12. TENORMIN [Concomitant]
  13. TYLENOL (CAPLET) [Concomitant]
  14. VICODIN [Concomitant]
  15. VANCOMYCIN [Concomitant]
  16. HEPARIN [Concomitant]
  17. SODIUM CHLORIDE [Concomitant]
  18. DURAGESIC [Concomitant]

REACTIONS (2)
  - HAEMORRHAGE [None]
  - INADEQUATE ANALGESIA [None]
